FAERS Safety Report 9091897 (Version 1)
Quarter: 2013Q1

REPORT INFORMATION
  Report Type: Spontaneous
  Country: DE (occurrence: HR)
  Receive Date: 20130131
  Receipt Date: 20130131
  Transmission Date: 20140127
  Serious: Yes (Other)
  Sender: FDA-Public Use
  Company Number: 2013SP000119

PATIENT
  Age: 34 Year
  Sex: Male

DRUGS (3)
  1. ALVESCO [Suspect]
     Indication: ASTHMA
     Route: 055
     Dates: start: 20120709, end: 201212
  2. SERETIDE [Concomitant]
     Indication: ASTHMA
     Route: 055
  3. TENOX /00685301/ [Concomitant]
     Indication: PRODUCT USED FOR UNKNOWN INDICATION
     Route: 048
     Dates: start: 2011

REACTIONS (2)
  - Drug ineffective [None]
  - Bronchospasm [Recovered/Resolved]
